FAERS Safety Report 7023544-5 (Version None)
Quarter: 2010Q3

REPORT INFORMATION
  Report Type: 
  Country: None (occurrence: None)
  Receive Date: 20100930
  Receipt Date: 20100930
  Transmission Date: 20110219
  Serious: Yes (Other)
  Sender: FDA-Public Use
  Company Number: None

PATIENT
  Age: 2 Year
  Sex: Female
  Weight: 9.0719 kg

DRUGS (1)
  1. MY FIRST FLINTSTONES TABLETS BAYER [Suspect]
     Indication: VITAMIN SUPPLEMENTATION
     Dosage: 1 DAILY PO
     Route: 048
     Dates: start: 20070726, end: 20071015

REACTIONS (3)
  - AGGRESSION [None]
  - MOOD SWINGS [None]
  - REACTION TO DRUG EXCIPIENTS [None]
